FAERS Safety Report 18642786 (Version 3)
Quarter: 2021Q1

REPORT INFORMATION
  Report Type: Spontaneous
  Country: US (occurrence: US)
  Receive Date: 20201221
  Receipt Date: 20210308
  Transmission Date: 20210419
  Serious: No
  Sender: FDA-Public Use
  Company Number: US-PFIZER INC-2016262617

PATIENT
  Age: 79 Year
  Sex: Female
  Weight: 42.18 kg

DRUGS (2)
  1. PREMARIN [Suspect]
     Active Substance: ESTROGENS, CONJUGATED
     Dosage: UNK (0.625 MG/G, EVERY 2 TO 3 DAYS)
     Route: 067
  2. PREMARIN [Suspect]
     Active Substance: ESTROGENS, CONJUGATED
     Indication: MENOPAUSE
     Dosage: 1 G, DAILY
     Route: 067

REACTIONS (4)
  - Urinary incontinence [Unknown]
  - Off label use [Unknown]
  - Nervous system disorder [Unknown]
  - Product use issue [Unknown]
